FAERS Safety Report 19165127 (Version 1)
Quarter: 2021Q2

REPORT INFORMATION
  Report Type: Spontaneous
  Country: FR (occurrence: FR)
  Receive Date: 20210421
  Receipt Date: 20210421
  Transmission Date: 20210717
  Serious: Yes (Life-Threatening)
  Sender: FDA-Public Use
  Company Number: FR-TEVA-2021-FR-1902588

PATIENT
  Age: 66 Year
  Sex: Male
  Weight: 89 kg

DRUGS (9)
  1. METFORMINE [Suspect]
     Active Substance: METFORMIN HYDROCHLORIDE
     Indication: INSULIN-REQUIRING TYPE 2 DIABETES MELLITUS
     Dosage: 3000 MG
     Route: 048
  2. ACIDE FOLIQUE [Concomitant]
     Active Substance: FOLIC ACID
  3. ATORVASTATINE [Concomitant]
     Active Substance: ATORVASTATIN
  4. ATENOLOL. [Concomitant]
     Active Substance: ATENOLOL
  5. PANTOPRAZOLE [Concomitant]
     Active Substance: PANTOPRAZOLE
  6. PERINDOPRIL [Concomitant]
     Active Substance: PERINDOPRIL
  7. REPAGLINIDE. [Concomitant]
     Active Substance: REPAGLINIDE
  8. RISPERIDONE. [Concomitant]
     Active Substance: RISPERIDONE
  9. LIRAGLUTIDE [Concomitant]
     Active Substance: LIRAGLUTIDE

REACTIONS (4)
  - Lactic acidosis [Recovered/Resolved]
  - Metabolic acidosis [Recovered/Resolved]
  - Overdose [Recovered/Resolved]
  - Acute kidney injury [Recovered/Resolved]

NARRATIVE: CASE EVENT DATE: 20210324
